FAERS Safety Report 25837191 (Version 1)
Quarter: 2025Q3

REPORT INFORMATION
  Report Type: Spontaneous
  Country: CA (occurrence: CA)
  Receive Date: 20250923
  Receipt Date: 20250923
  Transmission Date: 20251020
  Serious: Yes (Other)
  Sender: MYLAN
  Company Number: CA-MYLANLABS-2025M1080426

PATIENT
  Age: 29 Year
  Sex: Female

DRUGS (5)
  1. LEVOTHYROXINE [Suspect]
     Active Substance: LEVOTHYROXINE
     Indication: Hypothyroidism
     Dosage: 25 MICROGRAM, QD (1 EVERY 1 DAYS)
  2. OLANZAPINE [Suspect]
     Active Substance: OLANZAPINE
     Indication: Mania
  3. QUETIAPINE FUMARATE [Suspect]
     Active Substance: QUETIAPINE FUMARATE
     Indication: Bipolar disorder
     Dosage: 200 MILLIGRAM, QD (1 EVERY 1 DAYS)
  4. QUETIAPINE FUMARATE [Suspect]
     Active Substance: QUETIAPINE FUMARATE
  5. QUETIAPINE FUMARATE [Suspect]
     Active Substance: QUETIAPINE FUMARATE
     Dosage: 300 MILLIGRAM, QD (1 EVERY 1 DAYS)

REACTIONS (5)
  - Orthostatic hypotension [Recovered/Resolved]
  - Restlessness [Recovered/Resolved]
  - Exposure during pregnancy [Recovered/Resolved]
  - Therapeutic response decreased [Recovered/Resolved]
  - Drug ineffective [Recovered/Resolved]
